FAERS Safety Report 17579529 (Version 1)
Quarter: 2020Q1

REPORT INFORMATION
  Report Type: Spontaneous
  Country: US (occurrence: US)
  Receive Date: 20200325
  Receipt Date: 20200325
  Transmission Date: 20200409
  Serious: Yes (Death, Life-Threatening, Hospitalization, Other)
  Sender: FDA-Public Use
  Company Number: US-HIKMA PHARMACEUTICALS USA INC.-US-H14001-20-50921

PATIENT
  Age: 65 Year
  Sex: Female

DRUGS (16)
  1. RANOLAZINE. [Concomitant]
     Active Substance: RANOLAZINE
     Indication: PRODUCT USED FOR UNKNOWN INDICATION
     Dosage: IN TOTAL
     Route: 048
  2. CALCIUM [Concomitant]
     Active Substance: CALCIUM
     Indication: PRODUCT USED FOR UNKNOWN INDICATION
     Dosage: IN TOTAL
     Route: 042
  3. QUETIAPINE. [Concomitant]
     Active Substance: QUETIAPINE
     Indication: PRODUCT USED FOR UNKNOWN INDICATION
     Dosage: IN TOTAL
     Route: 048
  4. CHARCOAL, ACTIVATED [Concomitant]
     Active Substance: ACTIVATED CHARCOAL
     Indication: PRODUCT USED FOR UNKNOWN INDICATION
     Dosage: IN TOTAL
     Route: 065
  5. VASOPRESSIN. [Suspect]
     Active Substance: VASOPRESSIN
     Indication: CARDIAC ARREST
     Dosage: ()
     Route: 042
  6. EPINEPHRINE. [Suspect]
     Active Substance: EPINEPHRINE
     Indication: CARDIAC ARREST
     Dosage: ()
     Route: 042
  7. GABAPENTIN. [Concomitant]
     Active Substance: GABAPENTIN
     Indication: PRODUCT USED FOR UNKNOWN INDICATION
     Dosage: ()
     Route: 065
  8. PHENYLEPHRINE [Suspect]
     Active Substance: PHENYLEPHRINE HYDROCHLORIDE
     Indication: PULSELESS ELECTRICAL ACTIVITY
     Route: 042
  9. TRAZODONE [Concomitant]
     Active Substance: TRAZODONE HYDROCHLORIDE
     Indication: PRODUCT USED FOR UNKNOWN INDICATION
     Dosage: ()
     Route: 065
  10. VALPROIC ACID. [Concomitant]
     Active Substance: VALPROIC ACID
     Indication: PRODUCT USED FOR UNKNOWN INDICATION
     Dosage: IN TOTAL
     Route: 048
  11. MIRTAZAPINE. [Concomitant]
     Active Substance: MIRTAZAPINE
     Indication: PRODUCT USED FOR UNKNOWN INDICATION
     Dosage: IN TOTAL
     Route: 048
  12. NOREPINEPHRINE. [Concomitant]
     Active Substance: NOREPINEPHRINE
     Indication: HYPOTENSION
     Dosage: ()
     Route: 065
  13. MAGNESIUM [Concomitant]
     Active Substance: MAGNESIUM
     Indication: HYPOTENSION
     Dosage: IN TOTAL
     Route: 042
  14. GLUCAGON. [Suspect]
     Active Substance: GLUCAGON
     Indication: PULSELESS ELECTRICAL ACTIVITY
     Route: 042
  15. RIVAROXABAN [Concomitant]
     Active Substance: RIVAROXABAN
     Indication: PRODUCT USED FOR UNKNOWN INDICATION
     Dosage: ()
     Route: 065
  16. RIVAROXABAN [Concomitant]
     Active Substance: RIVAROXABAN
     Dosage: ()
     Route: 065

REACTIONS (1)
  - Drug ineffective [Fatal]
